FAERS Safety Report 17409294 (Version 2)
Quarter: 2020Q1

REPORT INFORMATION
  Report Type: Spontaneous
  Country: US (occurrence: US)
  Receive Date: 20200212
  Receipt Date: 20200302
  Transmission Date: 20200409
  Serious: Yes (Other)
  Sender: FDA-Public Use
  Company Number: US-FARMAPROD-202002-0150

PATIENT
  Age: 83 Year
  Sex: Male

DRUGS (10)
  1. SIMBRINZA [Concomitant]
     Active Substance: BRIMONIDINE TARTRATE\BRINZOLAMIDE
     Indication: GLAUCOMA
     Route: 061
     Dates: start: 20191112
  2. OXERVATE [Suspect]
     Active Substance: CENEGERMIN-BKBJ
     Indication: CORNEAL EPITHELIUM DEFECT
     Route: 047
     Dates: start: 20200126
  3. AUTOLOGOUS SERUM TEARS [Concomitant]
     Indication: PERSISTENT CORNEAL EPITHELIAL DEFECT
     Route: 061
     Dates: start: 20191210, end: 20200212
  4. VALTREX [Concomitant]
     Active Substance: VALACYCLOVIR HYDROCHLORIDE
     Indication: HERPES SIMPLEX
     Route: 048
     Dates: start: 20200109, end: 20200125
  5. ACICLOVIR [Concomitant]
     Active Substance: ACYCLOVIR
     Indication: PERSISTENT CORNEAL EPITHELIAL DEFECT
     Route: 048
     Dates: start: 20200130, end: 20200206
  6. VIGAMOX [Concomitant]
     Active Substance: MOXIFLOXACIN HYDROCHLORIDE
     Indication: PERSISTENT CORNEAL EPITHELIAL DEFECT
     Route: 061
     Dates: start: 20200109
  7. ACICLOVIR [Concomitant]
     Active Substance: ACYCLOVIR
     Route: 048
     Dates: start: 20200206
  8. OXERVATE [Suspect]
     Active Substance: CENEGERMIN-BKBJ
     Indication: NEUROTROPHIC KERATOPATHY
  9. TIMOLOL. [Concomitant]
     Active Substance: TIMOLOL
     Indication: GLAUCOMA
     Route: 061
     Dates: start: 20191112
  10. VALTREX [Concomitant]
     Active Substance: VALACYCLOVIR HYDROCHLORIDE
     Indication: VARICELLA ZOSTER VIRUS INFECTION

REACTIONS (1)
  - Symblepharon [Not Recovered/Not Resolved]

NARRATIVE: CASE EVENT DATE: 20200130
